FAERS Safety Report 16352295 (Version 1)
Quarter: 2019Q2

REPORT INFORMATION
  Report Type: Report from Study
  Country: CN (occurrence: CN)
  Receive Date: 20190524
  Receipt Date: 20190524
  Transmission Date: 20190711
  Serious: Yes (Hospitalization, Other)
  Sender: FDA-Public Use
  Company Number: PHHY2019CN117061

PATIENT
  Sex: Female
  Weight: 60 kg

DRUGS (11)
  1. GOSERELIN [Suspect]
     Active Substance: GOSERELIN
     Indication: INVASIVE DUCTAL BREAST CARCINOMA
     Dosage: 3.6 MG, Q4W (CYCLIC)
     Route: 058
     Dates: start: 20180717, end: 20181213
  2. GLUCOSE [Concomitant]
     Active Substance: DEXTROSE
     Indication: BLOOD ELECTROLYTES ABNORMAL
     Route: 065
  3. ROXATIDINE ACETATE HYDROCHLORIDE [Concomitant]
     Active Substance: ROXATIDINE ACETATE HYDROCHLORIDE
     Indication: PROPHYLAXIS
     Route: 065
  4. LEVOTHYROXINE SODIUM. [Concomitant]
     Active Substance: LEVOTHYROXINE SODIUM
     Indication: HORMONE THERAPY
     Route: 065
  5. CALCIUM CARBONATE. [Concomitant]
     Active Substance: CALCIUM CARBONATE
     Indication: PROPHYLAXIS
     Route: 065
  6. POTASSIUM [Concomitant]
     Active Substance: POTASSIUM
     Indication: BLOOD ELECTROLYTES ABNORMAL
     Route: 065
  7. VITAMIN D [Concomitant]
     Active Substance: VITAMIN D NOS
     Indication: HYPERTHYROIDISM
     Dosage: UNK
     Route: 065
     Dates: start: 20180816
  8. MAGNESIUM [Concomitant]
     Active Substance: MAGNESIUM
     Indication: BLOOD ELECTROLYTES ABNORMAL
     Route: 065
  9. THIAMAZOLE [Concomitant]
     Active Substance: METHIMAZOLE
     Indication: HYPERTHYROIDISM
     Dosage: UNK
     Route: 065
     Dates: start: 20180809, end: 20181224
  10. CALCIUM [Concomitant]
     Active Substance: CALCIUM
     Indication: BLOOD ELECTROLYTES ABNORMAL
     Route: 065
  11. LETROZOLE. [Suspect]
     Active Substance: LETROZOLE
     Indication: INVASIVE DUCTAL BREAST CARCINOMA
     Dosage: 2.5 MG, QD
     Route: 048
     Dates: start: 20180717, end: 20181216

REACTIONS (6)
  - Second primary malignancy [Recovering/Resolving]
  - Thyroid mass [Unknown]
  - Thyroiditis [Unknown]
  - Respiratory tract oedema [Unknown]
  - Papillary thyroid cancer [Recovering/Resolving]
  - Increased bronchial secretion [Unknown]

NARRATIVE: CASE EVENT DATE: 20181214
